FAERS Safety Report 4555204-4 (Version None)
Quarter: 2004Q4

REPORT INFORMATION
  Report Type: 
  Country: None (occurrence: None)
  Receive Date: 20041217
  Receipt Date: 20040823
  Transmission Date: 20050328
  Serious: No
  Sender: FDA-Public Use
  Company Number: 2004-BP-05906BP

PATIENT
  Age: 65 Year
  Sex: Male
  Weight: 93.89 kg

DRUGS (14)
  1. SPIRIVA [Suspect]
     Indication: BRONCHIECTASIS
     Dosage: (18 MCG), IH
     Route: 055
     Dates: start: 20040622
  2. SPIRIVA [Suspect]
     Indication: CHRONIC OBSTRUCTIVE AIRWAYS DISEASE
     Dosage: (18 MCG), IH
     Route: 055
     Dates: start: 20040622
  3. ADVAIR (SERETIDE MITE) [Concomitant]
  4. COMBIVENT [Concomitant]
  5. BECONASE (BECLOMETASONE DIPROPIONATE) [Concomitant]
  6. CELEXA [Concomitant]
  7. NEURONTIN [Concomitant]
  8. VERAPAMIL [Concomitant]
  9. DIAZIDE (GLICLAZIDE) [Concomitant]
  10. CELEXA [Concomitant]
  11. VISTANIL [Concomitant]
  12. CHLOROCON [Concomitant]
  13. CRONANLZ [Concomitant]
  14. EYE DROPS [Concomitant]

REACTIONS (2)
  - INITIAL INSOMNIA [None]
  - INSOMNIA [None]
